FAERS Safety Report 7134147-6 (Version None)
Quarter: 2010Q4

REPORT INFORMATION
  Report Type: 
  Country: None (occurrence: None)
  Receive Date: 20101203
  Receipt Date: 20101124
  Transmission Date: 20110411
  Serious: Yes (Other)
  Sender: FDA-Public Use
  Company Number: US-JNJFOC-20101200278

PATIENT
  Sex: Male
  Weight: 90.72 kg

DRUGS (5)
  1. REMICADE [Suspect]
     Indication: CROHN'S DISEASE
     Route: 042
  2. AVAPRO [Concomitant]
     Indication: HYPERTENSION
     Route: 048
  3. TRIAMTERENE AND HYDROCHLOROTHIAZIDE [Concomitant]
     Indication: HYPERTENSION
     Route: 049
  4. ENTOCORT EC [Concomitant]
     Indication: CROHN'S DISEASE
     Route: 048
  5. ALLOPURINOL [Concomitant]
     Indication: BLOOD URIC ACID
     Route: 048

REACTIONS (2)
  - PRECANCEROUS CELLS PRESENT [None]
  - PROSTATIC SPECIFIC ANTIGEN INCREASED [None]
